FAERS Safety Report 8574924-8 (Version None)
Quarter: 2012Q3

REPORT INFORMATION
  Report Type: 
  Country: None (occurrence: None)
  Receive Date: 20120807
  Receipt Date: 20110314
  Transmission Date: 20120928
  Serious: Yes (Other)
  Sender: FDA-Public Use
  Company Number: DE-CELGENEUS-062-50794-12052729

PATIENT
  Age: 83 Year
  Sex: Male
  Weight: 70 kg

DRUGS (13)
  1. VIDAZA [Suspect]
     Route: 058
     Dates: start: 20100823
  2. PLATELETS [Concomitant]
     Route: 065
     Dates: start: 20100811
  3. VIDAZA [Suspect]
     Route: 058
     Dates: start: 20100726
  4. PLATELETS [Concomitant]
     Route: 065
     Dates: start: 20101026
  5. VIDAZA [Suspect]
     Route: 058
     Dates: start: 20100419
  6. VIDAZA [Suspect]
     Route: 058
     Dates: start: 20100517
  7. VIDAZA [Suspect]
     Route: 058
     Dates: start: 20100920
  8. PLATELETS [Concomitant]
     Route: 065
     Dates: start: 20100525
  9. VIDAZA [Suspect]
     Route: 058
     Dates: start: 20100628
  10. PLATELETS [Concomitant]
     Route: 041
     Dates: end: 20100420
  11. PLATELETS [Concomitant]
     Route: 065
     Dates: start: 20101005
  12. VIDAZA [Suspect]
     Route: 058
     Dates: start: 20101025, end: 20101027
  13. PLATELETS [Concomitant]
     Route: 065
     Dates: start: 20100712

REACTIONS (17)
  - GASTROOESOPHAGEAL REFLUX DISEASE [None]
  - GENERAL PHYSICAL HEALTH DETERIORATION [None]
  - VOMITING [None]
  - HAEMOGLOBIN DECREASED [None]
  - LACRIMATION INCREASED [None]
  - DEHYDRATION [None]
  - NECK PAIN [None]
  - SUBCUTANEOUS ABSCESS [None]
  - PLATELET COUNT DECREASED [None]
  - THROMBOPHLEBITIS [None]
  - BLOOD CREATININE INCREASED [None]
  - WHITE BLOOD CELL COUNT DECREASED [None]
  - INJECTION SITE REACTION [None]
  - ABDOMINAL PAIN UPPER [None]
  - CARDIOVASCULAR DISORDER [None]
  - NAUSEA [None]
  - HYPOTENSION [None]
